FAERS Safety Report 5481619-6 (Version None)
Quarter: 2007Q4

REPORT INFORMATION
  Report Type: 
  Country: None (occurrence: None)
  Receive Date: 20071010
  Receipt Date: 20070928
  Transmission Date: 20080405
  Serious: Yes (Hospitalization, Other)
  Sender: FDA-Public Use
  Company Number: US-ELI_LILLY_AND_COMPANY-US200709006911

PATIENT
  Sex: Female

DRUGS (2)
  1. FORTEO [Suspect]
     Indication: OSTEOPOROSIS
     Dates: start: 20050101
  2. FORTEO [Suspect]
     Dates: start: 20060101

REACTIONS (7)
  - ARTHROPATHY [None]
  - BONE CYST [None]
  - CYST [None]
  - EYELASH THICKENING [None]
  - GLAUCOMA [None]
  - HEADACHE [None]
  - OSTEOMYELITIS [None]
